FAERS Safety Report 12454121 (Version 4)
Quarter: 2018Q2

REPORT INFORMATION
  Report Type: Spontaneous
  Country: CA (occurrence: CA)
  Receive Date: 20160610
  Receipt Date: 20180423
  Transmission Date: 20180711
  Serious: Yes (Other)
  Sender: FDA-Public Use
  Company Number: CA-ROCHE-1771508

PATIENT
  Age: 69 Year
  Sex: Female

DRUGS (13)
  1. PLAQUENIL [Suspect]
     Active Substance: HYDROXYCHLOROQUINE SULFATE
     Indication: PRODUCT USED FOR UNKNOWN INDICATION
     Dosage: PLAQUENIL (HYDROXYCHLOROQUINE SULFATE)
     Route: 065
  2. GRAVOL GINGER [Concomitant]
  3. CIMZIA [Suspect]
     Active Substance: CERTOLIZUMAB PEGOL
     Indication: PRODUCT USED FOR UNKNOWN INDICATION
     Dosage: SOLUTION SUBCUTANEOUS
     Route: 058
  4. METHOTREXATE SODIUM. [Suspect]
     Active Substance: METHOTREXATE SODIUM
     Indication: RHEUMATOID ARTHRITIS
     Route: 065
  5. XALATAN [Concomitant]
     Active Substance: LATANOPROST
     Dosage: SOLUTION OPTHALMIC
     Route: 047
  6. COSOPT [Concomitant]
     Active Substance: DORZOLAMIDE HYDROCHLORIDE\TIMOLOL MALEATE
     Dosage: EYE DROPS
     Route: 065
  7. VALSARTAN. [Concomitant]
     Active Substance: VALSARTAN
     Route: 065
  8. ESTRADIOL. [Concomitant]
     Active Substance: ESTRADIOL
     Route: 065
  9. ENBREL [Suspect]
     Active Substance: ETANERCEPT
     Indication: PRODUCT USED FOR UNKNOWN INDICATION
     Dosage: THERAPY DURATION: 190 DAYS
     Route: 065
     Dates: start: 20130405, end: 20131011
  10. ACTEMRA [Suspect]
     Active Substance: TOCILIZUMAB
     Indication: PRODUCT USED FOR UNKNOWN INDICATION
     Route: 065
  11. FUROSEMIDE. [Concomitant]
     Active Substance: FUROSEMIDE
     Route: 065
  12. ORENCIA [Suspect]
     Active Substance: ABATACEPT
     Indication: PRODUCT USED FOR UNKNOWN INDICATION
     Route: 065
  13. ERGOCALCIFEROL. [Concomitant]
     Active Substance: ERGOCALCIFEROL
     Route: 065

REACTIONS (10)
  - Drug ineffective [Unknown]
  - Synovitis [Unknown]
  - Diverticulitis [Not Recovered/Not Resolved]
  - Treatment failure [Unknown]
  - Drug hypersensitivity [Not Recovered/Not Resolved]
  - Colitis microscopic [Not Recovered/Not Resolved]
  - Glaucoma [Not Recovered/Not Resolved]
  - Bronchitis [Not Recovered/Not Resolved]
  - Drug intolerance [Not Recovered/Not Resolved]
  - Drug hypersensitivity [Unknown]

NARRATIVE: CASE EVENT DATE: 20160505
